FAERS Safety Report 24819174 (Version 2)
Quarter: 2025Q1

REPORT INFORMATION
  Report Type: Spontaneous
  Country: US (occurrence: US)
  Receive Date: 20250108
  Receipt Date: 20250121
  Transmission Date: 20250409
  Serious: No
  Sender: BAYER HEALTHCARE PHARMACEUTICALS INC.
  Company Number: US-BAYER-2025A000679

PATIENT
  Age: 61 Year
  Sex: Female

DRUGS (1)
  1. MIRENA [Suspect]
     Active Substance: LEVONORGESTREL
     Indication: Prevention of endometrial hyperplasia
     Dosage: 20?G/DAY
     Route: 015
     Dates: start: 20241106, end: 20241227

REACTIONS (9)
  - Migraine [Recovering/Resolving]
  - Influenza like illness [None]
  - Post procedural haemorrhage [Recovered/Resolved]
  - Nausea [None]
  - Dizziness [None]
  - Pain [Not Recovered/Not Resolved]
  - Myalgia [None]
  - Off label use [None]
  - Chills [Not Recovered/Not Resolved]

NARRATIVE: CASE EVENT DATE: 20240101
